FAERS Safety Report 8201184-X (Version None)
Quarter: 2012Q1

REPORT INFORMATION
  Report Type: 
  Country: None (occurrence: None)
  Receive Date: 20120312
  Receipt Date: 20120229
  Transmission Date: 20120608
  Serious: Yes (Hospitalization)
  Sender: FDA-Public Use
  Company Number: PHHO2012JP003248

PATIENT
  Sex: Male

DRUGS (10)
  1. HIRUDOID [Concomitant]
     Indication: ECZEMA
     Dosage: UNK
     Dates: start: 20100109
  2. AZUNOL [Concomitant]
     Indication: STOMATITIS
     Dosage: UNK
     Route: 048
     Dates: start: 20101201
  3. ILARIS [Suspect]
     Indication: CRYOPYRIN ASSOCIATED PERIODIC SYNDROME
     Dosage: 150 MG, UNK
     Route: 058
     Dates: start: 20111104, end: 20120126
  4. RINDERON-VG [Concomitant]
     Indication: ECZEMA
     Dosage: UNK
     Dates: start: 20090601
  5. LOXONIN [Concomitant]
     Indication: CRYOPYRIN ASSOCIATED PERIODIC SYNDROME
     Dosage: UNK
     Route: 048
     Dates: start: 20100109
  6. ACUATIM [Concomitant]
     Indication: ECZEMA
     Dosage: UNK
     Dates: start: 20100623
  7. NAPROXEN [Concomitant]
     Indication: POLYARTHRITIS
     Dosage: UNK
     Route: 048
     Dates: start: 20110310
  8. PREDNISOLONE [Concomitant]
     Indication: CRYOPYRIN ASSOCIATED PERIODIC SYNDROME
     Dosage: 5 MG, UNK
     Route: 048
     Dates: start: 20090601, end: 20100929
  9. ALEGYSAL [Concomitant]
     Indication: CONJUNCTIVITIS ALLERGIC
     Dosage: UNK
     Dates: start: 20110811
  10. FAMOTIDINE [Concomitant]
     Indication: PROPHYLAXIS AGAINST GASTROINTESTINAL ULCER
     Dosage: 20 MG, UNK
     Route: 048
     Dates: start: 20110310

REACTIONS (1)
  - APPENDICITIS [None]
